FAERS Safety Report 4836306-1 (Version None)
Quarter: 2005Q4

REPORT INFORMATION
  Report Type: 
  Country: None (occurrence: None)
  Receive Date: 20051118
  Receipt Date: 20051116
  Transmission Date: 20060501
  Serious: Yes (Hospitalization)
  Sender: FDA-Public Use
  Company Number: TAP2005Q01902

PATIENT
  Age: 43 Year
  Sex: Female
  Weight: 68.2 kg

DRUGS (12)
  1. PREVACID [Suspect]
     Indication: GASTROOESOPHAGEAL REFLUX DISEASE
     Dosage: 30 MG, 1 IN 1 D, PER ORAL; 30  MG, 2 IN 1 D, PER ORAL
     Route: 048
     Dates: start: 20030101, end: 20050701
  2. PREVACID [Suspect]
     Indication: GASTROOESOPHAGEAL REFLUX DISEASE
     Dosage: 30 MG, 1 IN 1 D, PER ORAL; 30  MG, 2 IN 1 D, PER ORAL
     Route: 048
     Dates: start: 20050701
  3. LORTAB [Suspect]
     Indication: MIGRAINE
     Dosage: 10 MG, AS REQUIRED; ABOUT 12 TABLETS/MONTH, PER ORAL
     Route: 048
  4. TYLOX [Suspect]
     Indication: PAIN
     Dosage: 1 CAP., 4:1 D; 10/500, PER ORAL
     Route: 048
  5. ASPIRIN [Suspect]
     Indication: PAIN
     Dosage: AS REQUIRED, PER ORAL
     Route: 048
  6. ADVIL [Suspect]
     Indication: PAIN
     Dosage: AS REQUIRED, PER ORAL
     Route: 048
  7. ZOLOFT [Concomitant]
  8. ATARAX [Concomitant]
  9. REGLAN [Concomitant]
  10. ZANTAC [Concomitant]
  11. EFFEXOR XR [Concomitant]
  12. DONNATAL PLAIN TABLETS (DONNATAL) [Concomitant]

REACTIONS (5)
  - ADRENAL MASS [None]
  - CHEST PAIN [None]
  - COLITIS [None]
  - DIARRHOEA [None]
  - PERFORATED ULCER [None]
